FAERS Safety Report 9088375 (Version 1)
Quarter: 2013Q1

REPORT INFORMATION
  Report Type: Report from Study
  Country: US (occurrence: US)
  Receive Date: 20130201
  Receipt Date: 20130201
  Transmission Date: 20140127
  Serious: No
  Sender: FDA-Public Use
  Company Number: US-ABBOTT-12P-163-1024846-00

PATIENT
  Age: 36 Year
  Sex: Male

DRUGS (5)
  1. HUMIRA [Suspect]
     Indication: RHEUMATOID ARTHRITIS
  2. SIMVASTATIN [Concomitant]
     Indication: BLOOD CHOLESTEROL
  3. FIORICET [Concomitant]
     Indication: MIGRAINE
  4. NUCYNTA [Concomitant]
     Indication: PAIN MANAGEMENT
  5. IMITREX [Concomitant]
     Indication: MIGRAINE

REACTIONS (1)
  - Injection site pain [Not Recovered/Not Resolved]
